FAERS Safety Report 14997126 (Version 1)
Quarter: 2018Q2

REPORT INFORMATION
  Report Type: Spontaneous
  Country: ES (occurrence: ES)
  Receive Date: 20180611
  Receipt Date: 20180611
  Transmission Date: 20180711
  Serious: Yes (Other)
  Sender: FDA-Public Use
  Company Number: ES-FRESENIUS KABI-FK201806697

PATIENT
  Age: 14 Year
  Sex: Female

DRUGS (3)
  1. IRINOTECAN (MANUFACTURER UNKNOWN) [Suspect]
     Active Substance: IRINOTECAN
     Indication: EWING^S SARCOMA
     Dosage: ON DAYS 1-5 AND 8-13
     Route: 042
     Dates: start: 201004
  2. TEMOZOLOMIDE. [Suspect]
     Active Substance: TEMOZOLOMIDE
     Indication: EWING^S SARCOMA
     Dosage: ON DAYS 1-21
     Route: 048
     Dates: start: 201004
  3. BEVACIZUMAB. [Suspect]
     Active Substance: BEVACIZUMAB
     Indication: EWING^S SARCOMA
     Dosage: EVERY 21 DAYS X 5 CYCLES
     Route: 042
     Dates: start: 201004

REACTIONS (1)
  - Blood stem cell harvest failure [Recovered/Resolved]
